FAERS Safety Report 21692345 (Version 3)
Quarter: 2024Q2

REPORT INFORMATION
  Report Type: Spontaneous
  Country: CN (occurrence: CN)
  Receive Date: 20221207
  Receipt Date: 20240402
  Transmission Date: 20240715
  Serious: Yes (Death, Life-Threatening, Hospitalization, Other)
  Sender: FDA-Public Use
  Company Number: CN-MLMSERVICE-20221124-3932223-1

PATIENT
  Age: 30 Year
  Sex: Female

DRUGS (2)
  1. METHYLPREDNISOLONE [Suspect]
     Active Substance: METHYLPREDNISOLONE
     Indication: Systemic lupus erythematosus
     Dosage: 44 MG, 1X/DAY
     Route: 048
     Dates: start: 2020
  2. MYCOPHENOLATE MOFETIL [Suspect]
     Active Substance: MYCOPHENOLATE MOFETIL
     Indication: Systemic lupus erythematosus
     Dosage: 1 G, 2X/DAY FREQ:12 H;
     Route: 048
     Dates: start: 2020

REACTIONS (5)
  - Scedosporium infection [Fatal]
  - Intraventricular haemorrhage [Fatal]
  - Brain abscess [Fatal]
  - Central nervous system fungal infection [Fatal]
  - Meningitis tuberculous [Fatal]

NARRATIVE: CASE EVENT DATE: 20200101
